FAERS Safety Report 9114501 (Version 2)
Quarter: 2013Q2

REPORT INFORMATION
  Report Type: Spontaneous
  Country: CA (occurrence: CA)
  Receive Date: 20130208
  Receipt Date: 20130408
  Transmission Date: 20140414
  Serious: Yes (Life-Threatening, Other)
  Sender: FDA-Public Use
  Company Number: CA-ELI_LILLY_AND_COMPANY-CA201301003821

PATIENT
  Age: 84 Year
  Sex: Male

DRUGS (2)
  1. HUMALOG LISPRO [Suspect]
     Dosage: UNK
     Dates: start: 1993
  2. LANTUS [Concomitant]
     Dosage: UNK
     Dates: start: 1993

REACTIONS (3)
  - Cardiac arrest [Recovered/Resolved]
  - Wrist fracture [Unknown]
  - Rib fracture [Unknown]
